FAERS Safety Report 8243000 (Version 4)
Quarter: 2013Q1

REPORT INFORMATION
  Report Type: Spontaneous
  Country: US (occurrence: None)
  Receive Date: 20111107
  Receipt Date: 20130214
  Transmission Date: 20140127
  Serious: Yes (Other)
  Sender: FDA-Public Use
  Company Number: 20110771

PATIENT
  Age: 37 Year
  Sex: Male

DRUGS (1)
  1. HYDROXYZINE HYDROCHLORIDE [Suspect]
     Indication: ANXIETY
     Dosage: DOSE ONCE
     Dates: start: 201103, end: 201103

REACTIONS (13)
  - Pain [None]
  - Injection site pain [None]
  - Hypoaesthesia [None]
  - Paraesthesia [None]
  - Balance disorder [None]
  - Feeling abnormal [None]
  - Skin discolouration [None]
  - Vein disorder [None]
  - Joint contracture [None]
  - Off label use [None]
  - Injection site pain [None]
  - Burning sensation [None]
  - Nerve compression [None]
